FAERS Safety Report 4368767-9 (Version None)
Quarter: 2004Q2

REPORT INFORMATION
  Report Type: 
  Country: None (occurrence: None)
  Receive Date: 20040525
  Receipt Date: 20040514
  Transmission Date: 20050107
  Serious: Yes (Death)
  Sender: FDA-Public Use
  Company Number: 2004AP00472

PATIENT
  Age: 13 Year
  Sex: Male

DRUGS (2)
  1. MARCAINE [Suspect]
     Indication: ANAESTHESIA
     Dosage: 2.3 ML IT
     Route: 038
     Dates: start: 20031205, end: 20031205
  2. DORMICUM [Concomitant]

REACTIONS (10)
  - ATRIOVENTRICULAR BLOCK [None]
  - BLOOD PH DECREASED [None]
  - BLOOD PRESSURE DECREASED [None]
  - CARDIAC ARREST [None]
  - DYSPNOEA [None]
  - GAZE PALSY [None]
  - HEART RATE DECREASED [None]
  - INJECTION SITE PAIN [None]
  - OPERATIVE HAEMORRHAGE [None]
  - TONIC CONVULSION [None]
